FAERS Safety Report 20065264 (Version 1)
Quarter: 2021Q4

REPORT INFORMATION
  Report Type: Spontaneous
  Country: BR (occurrence: BR)
  Receive Date: 20211113
  Receipt Date: 20211113
  Transmission Date: 20220303
  Serious: Yes (Other)
  Sender: FDA-Public Use
  Company Number: None

PATIENT
  Sex: Female

DRUGS (4)
  1. LOSARTAN POTASSIUM [Suspect]
     Active Substance: LOSARTAN POTASSIUM
     Dosage: UNK
  2. AMLODIPINE BESYLATE [Suspect]
     Active Substance: AMLODIPINE BESYLATE
     Dosage: UNK
  3. FUROSEMIDE [Concomitant]
     Active Substance: FUROSEMIDE
     Dosage: UNK
  4. GALANTAMINE HYDROBROMIDE [Concomitant]
     Active Substance: GALANTAMINE HYDROBROMIDE
     Dosage: UNK

REACTIONS (9)
  - Diabetes mellitus [Unknown]
  - Hypothyroidism [Unknown]
  - Fatigue [Unknown]
  - Chest pain [Unknown]
  - Cardiomegaly [Unknown]
  - Arthropathy [Unknown]
  - Joint effusion [Unknown]
  - Spinal disorder [Unknown]
  - Oedema peripheral [Unknown]
